FAERS Safety Report 15320709 (Version 1)
Quarter: 2018Q3

REPORT INFORMATION
  Report Type: Spontaneous
  Country: US (occurrence: US)
  Receive Date: 20180821
  Receipt Date: 20180821
  Transmission Date: 20181010
  Serious: Yes (Disabling)
  Sender: FDA-Public Use
  Company Number: None

PATIENT
  Age: 54 Year
  Sex: Female
  Weight: 81 kg

DRUGS (8)
  1. XOLAIR [Concomitant]
     Active Substance: OMALIZUMAB
  2. ZOCOR [Concomitant]
     Active Substance: SIMVASTATIN
  3. TYLENOL ARTHRITIS PAIN [Concomitant]
     Active Substance: ACETAMINOPHEN
  4. XYZAL [Concomitant]
     Active Substance: LEVOCETIRIZINE DIHYDROCHLORIDE
  5. SYNTHROID [Concomitant]
     Active Substance: LEVOTHYROXINE SODIUM
  6. INTRALESIONAL STEROID INJECTION [Suspect]
     Active Substance: CORTICOSTEROID NOS
     Indication: OSTEOARTHRITIS
     Route: 058
  7. MOBIC [Concomitant]
     Active Substance: MELOXICAM
  8. PREMPRO [Concomitant]
     Active Substance: ESTROGENS, CONJUGATED\MEDROXYPROGESTERONE ACETATE

REACTIONS (3)
  - Urticaria [None]
  - Headache [None]
  - Product contamination microbial [None]

NARRATIVE: CASE EVENT DATE: 20120801
